FAERS Safety Report 19817051 (Version 1)
Quarter: 2021Q3

REPORT INFORMATION
  Report Type: Spontaneous
  Country: US (occurrence: US)
  Receive Date: 20210910
  Receipt Date: 20210910
  Transmission Date: 20211014
  Serious: Yes (Other)
  Sender: FDA-Public Use
  Company Number: US-PFIZER INC-202101170008

PATIENT
  Age: 74 Year

DRUGS (3)
  1. CADUET [Suspect]
     Active Substance: AMLODIPINE BESYLATE\ATORVASTATIN CALCIUM
     Dosage: 10/80
  2. XANAX [Suspect]
     Active Substance: ALPRAZOLAM
     Dosage: UNK
  3. LIPITOR [Suspect]
     Active Substance: ATORVASTATIN CALCIUM
     Dosage: UNK

REACTIONS (9)
  - Arthritis [Unknown]
  - Abdominal discomfort [Unknown]
  - Glaucoma [Unknown]
  - Nephrolithiasis [Unknown]
  - Kidney infection [Unknown]
  - Gait disturbance [Unknown]
  - Pupillary disorder [Unknown]
  - Weight decreased [Unknown]
  - Renal cancer [Unknown]
